FAERS Safety Report 19740994 (Version 2)
Quarter: 2022Q1

REPORT INFORMATION
  Report Type: Spontaneous
  Country: US (occurrence: US)
  Receive Date: 20210825
  Receipt Date: 20220105
  Transmission Date: 20220424
  Serious: Yes (Other)
  Sender: FDA-Public Use
  Company Number: US-GILEAD-2021-0545318

PATIENT
  Sex: Female

DRUGS (25)
  1. TRUVADA [Suspect]
     Active Substance: EMTRICITABINE\TENOFOVIR DISOPROXIL FUMARATE
     Indication: HIV infection
     Dosage: UNK
     Route: 048
     Dates: start: 2008
  2. TRUVADA [Suspect]
     Active Substance: EMTRICITABINE\TENOFOVIR DISOPROXIL FUMARATE
     Dosage: UNK
     Route: 048
     Dates: start: 2009, end: 2012
  3. COMPLERA [Suspect]
     Active Substance: EMTRICITABINE\RILPIVIRINE HYDROCHLORIDE\TENOFOVIR DISOPROXIL FUMARATE
     Indication: HIV infection
     Dosage: UNK
     Route: 048
     Dates: start: 2008
  4. COMPLERA [Suspect]
     Active Substance: EMTRICITABINE\RILPIVIRINE HYDROCHLORIDE\TENOFOVIR DISOPROXIL FUMARATE
     Dosage: UNK
     Route: 048
     Dates: start: 2004, end: 2016
  5. ODEFSEY [Concomitant]
     Active Substance: EMTRICITABINE\RILPIVIRINE HYDROCHLORIDE\TENOFOVIR ALAFENAMIDE FUMARATE
  6. BIKTARVY [Concomitant]
     Active Substance: BICTEGRAVIR SODIUM\EMTRICITABINE\TENOFOVIR ALAFENAMIDE FUMARATE
  7. CRIXIVAN [Concomitant]
     Active Substance: INDINAVIR SULFATE
  8. EPIVIR [Concomitant]
     Active Substance: LAMIVUDINE
  9. NORVIR [Concomitant]
     Active Substance: RITONAVIR
  10. RETROVIR [Concomitant]
     Active Substance: ZIDOVUDINE
  11. REYATAZ [Concomitant]
     Active Substance: ATAZANAVIR SULFATE
  12. VIDEX [Concomitant]
     Active Substance: DIDANOSINE
  13. ZERIT [Concomitant]
     Active Substance: STAVUDINE
  14. ENALAPRIL [Concomitant]
     Active Substance: ENALAPRIL
  15. VENTOLIN HFA [Concomitant]
     Active Substance: ALBUTEROL SULFATE
  16. DOXYCYCLINE [Concomitant]
     Active Substance: DOXYCYCLINE
  17. TRIAMCINOLONE [Concomitant]
     Active Substance: TRIAMCINOLONE
  18. MUPIROCIN [Concomitant]
     Active Substance: MUPIROCIN
  19. MEGESTROL ACETATE [Concomitant]
     Active Substance: MEGESTROL ACETATE
  20. TOBRADEX [Concomitant]
     Active Substance: DEXAMETHASONE\TOBRAMYCIN
  21. VITAMIN D3 [Concomitant]
     Active Substance: CHOLECALCIFEROL
  22. AZITHROMYCIN [Concomitant]
     Active Substance: AZITHROMYCIN
  23. PREMARIN [Concomitant]
     Active Substance: ESTROGENS, CONJUGATED
  24. FEXOFENADINE [Concomitant]
     Active Substance: FEXOFENADINE HYDROCHLORIDE
  25. PREDNISONE [Concomitant]
     Active Substance: PREDNISONE

REACTIONS (10)
  - Osteoporosis [Not Recovered/Not Resolved]
  - Bone density decreased [Unknown]
  - Pain [Not Recovered/Not Resolved]
  - Emotional distress [Not Recovered/Not Resolved]
  - Anxiety [Not Recovered/Not Resolved]
  - Anhedonia [Not Recovered/Not Resolved]
  - Blood creatinine increased [Not Recovered/Not Resolved]
  - Osteopenia [Unknown]
  - Vitamin D deficiency [Not Recovered/Not Resolved]
  - Depression [Not Recovered/Not Resolved]

NARRATIVE: CASE EVENT DATE: 20060101
